FAERS Safety Report 21928752 (Version 1)
Quarter: 2023Q1

REPORT INFORMATION
  Report Type: Spontaneous
  Country: RU (occurrence: RU)
  Receive Date: 20230131
  Receipt Date: 20230131
  Transmission Date: 20230417
  Serious: Yes (Death)
  Sender: FDA-Public Use
  Company Number: RU-Ipsen Biopharmaceuticals, Inc.-2023-02036

PATIENT
  Sex: Female

DRUGS (6)
  1. LANREOTIDE ACETATE [Suspect]
     Active Substance: LANREOTIDE ACETATE
     Indication: Neuroendocrine tumour
     Route: 058
  2. ZOLEDRONIC ACID [Concomitant]
     Active Substance: ZOLEDRONIC ACID
     Indication: Neuroendocrine tumour
     Route: 042
  3. PACLITAXEL [Concomitant]
     Active Substance: PACLITAXEL
     Indication: Neuroendocrine tumour
  4. CISPLATIN [Concomitant]
     Active Substance: CISPLATIN
     Indication: Neuroendocrine tumour
  5. BEVACIZUMAB [Concomitant]
     Active Substance: BEVACIZUMAB
     Indication: Neuroendocrine tumour
  6. IRINOTECAN [Concomitant]
     Active Substance: IRINOTECAN
     Indication: Neuroendocrine tumour

REACTIONS (1)
  - Death [Fatal]

NARRATIVE: CASE EVENT DATE: 20220201
